FAERS Safety Report 8845360 (Version 2)
Quarter: 2013Q1

REPORT INFORMATION
  Report Type: Spontaneous
  Country: US (occurrence: None)
  Receive Date: 20121015
  Receipt Date: 20121113
  Transmission Date: 20140127
  Serious: Yes (Life-Threatening, Hospitalization)
  Sender: FDA-Public Use
  Company Number: 2012P1057576

PATIENT
  Sex: Female
  Weight: 70.31 kg

DRUGS (13)
  1. FENTANYL PATCH [Suspect]
     Indication: PAIN
     Dosage: 1 PATCH;Q72H; TDER
  2. FENTANYL PATCH [Suspect]
     Indication: ROAD TRAFFIC ACCIDENT
     Dosage: 1 PATCH;Q72H; TDER
  3. FENTANYL [Suspect]
     Indication: PAIN
  4. FENTANYL [Suspect]
     Indication: ROAD TRAFFIC ACCIDENT
  5. PREDNISONE [Suspect]
     Indication: RASH
     Dates: start: 201209, end: 201209
  6. NEURONTIN [Concomitant]
  7. METHADONE [Concomitant]
  8. ALPRAZOLAM [Concomitant]
  9. PROMETHAZINE [Concomitant]
  10. METHYLPREDNISONE [Concomitant]
  11. ADVAIR [Concomitant]
  12. RESCUE INHALER (UNSPECIFIED) [Concomitant]
  13. NEBULIZER MEDICATIONS (UNSPECIFIED) [Concomitant]

REACTIONS (13)
  - Rash [None]
  - Application site irritation [None]
  - Application site swelling [None]
  - Application site pain [None]
  - Application site erythema [None]
  - Application site burn [None]
  - Application site exfoliation [None]
  - Dyspnoea [None]
  - Palpitations [None]
  - Obstructive airways disorder [None]
  - Dysphagia [None]
  - Chest discomfort [None]
  - Panic attack [None]
